FAERS Safety Report 9723797 (Version 3)
Quarter: 2014Q1

REPORT INFORMATION
  Report Type: Spontaneous
  Country: JP (occurrence: JP)
  Receive Date: 20131202
  Receipt Date: 20140102
  Transmission Date: 20141002
  Serious: No
  Sender: FDA-Public Use
  Company Number: JP-PFIZER INC-2013336472

PATIENT
  Age: 8 Year
  Sex: Male
  Weight: 23.8 kg

DRUGS (9)
  1. ZITHROMAC [Suspect]
     Indication: BRONCHITIS
     Dosage: 240 MG, 1X/DAY
     Route: 048
     Dates: start: 20131105, end: 20131107
  2. ZITHROMAC [Suspect]
     Indication: ASTHMA
  3. KIPRES [Suspect]
     Indication: BRONCHITIS
     Dosage: 5 MG, 1X/DAY
     Route: 048
     Dates: start: 20131105, end: 20131118
  4. KIPRES [Suspect]
     Indication: ASTHMA
  5. MUCODYNE [Concomitant]
     Indication: PRODUCTIVE COUGH
     Dosage: 250 MG, 3X/DAY
     Route: 048
     Dates: start: 20131105, end: 20131109
  6. HUSTAZOL [Concomitant]
     Dosage: 10 MG, 3X/DAY
     Route: 048
     Dates: start: 20131105, end: 20131109
  7. ADOAIR [Concomitant]
     Dosage: UNK
  8. ALLELOCK [Concomitant]
     Indication: COUGH
     Dosage: 2.5 MG, 2X/DAY
     Route: 048
     Dates: start: 20131015, end: 20131118
  9. CALONAL [Concomitant]
     Dosage: 200 MG, AS NEEDED
     Dates: start: 20131105, end: 20131105

REACTIONS (1)
  - Drug eruption [Not Recovered/Not Resolved]
